FAERS Safety Report 7743469-7 (Version None)
Quarter: 2011Q3

REPORT INFORMATION
  Report Type: 
  Country: None (occurrence: None)
  Receive Date: 20110909
  Receipt Date: 20110909
  Transmission Date: 20111222
  Serious: Yes (Hospitalization)
  Sender: FDA-Public Use
  Company Number: None

PATIENT
  Sex: Female
  Weight: 76.2 kg

DRUGS (2)
  1. CISPLATIN [Suspect]
     Dosage: 90 MG
  2. PEMETREXED [Suspect]
     Dosage: 900 MG

REACTIONS (8)
  - ABDOMINAL PAIN UPPER [None]
  - FAECAL VOLUME INCREASED [None]
  - CHILLS [None]
  - ASTHENIA [None]
  - NAUSEA [None]
  - VOMITING [None]
  - DIARRHOEA [None]
  - ABDOMINAL PAIN LOWER [None]
